FAERS Safety Report 8991031 (Version 4)
Quarter: 2013Q1

REPORT INFORMATION
  Report Type: Spontaneous
  Country: IT (occurrence: IT)
  Receive Date: 20121231
  Receipt Date: 20130320
  Transmission Date: 20140127
  Serious: Yes (Hospitalization)
  Sender: FDA-Public Use
  Company Number: IT-BRISTOL-MYERS SQUIBB COMPANY-17239401

PATIENT
  Age: 73 Year
  Sex: Male

DRUGS (6)
  1. ERBITUX [Suspect]
     Indication: RECTAL CANCER
     Dosage: 1 DF:800MG/500MG;?800MG FROM 08JUN12 +CONTINUED 500MG/WK FROM 15JUN12
     Route: 042
     Dates: start: 20120608, end: 20120803
  2. IRINOTECAN [Concomitant]
     Route: 042
     Dates: start: 20120803, end: 20120803
  3. CHLORPHENAMINE MALEATE [Concomitant]
     Route: 042
     Dates: start: 20120803, end: 20120803
  4. DEXAMETHASONE [Concomitant]
     Indication: VOMITING
     Route: 042
     Dates: start: 20120803, end: 20120803
  5. ONDANSETRON [Concomitant]
     Route: 042
     Dates: start: 20120803, end: 20120803
  6. PANTOPRAZOLE [Concomitant]
     Route: 042
     Dates: start: 20120803, end: 20120803

REACTIONS (1)
  - Gastric ulcer perforation [Recovered/Resolved]
